FAERS Safety Report 9180476 (Version 1)
Quarter: 2013Q1

REPORT INFORMATION
  Report Type: Spontaneous
  Country: US (occurrence: US)
  Receive Date: 20130322
  Receipt Date: 20130322
  Transmission Date: 20140127
  Serious: No
  Sender: FDA-Public Use
  Company Number: US-BIOGENIDEC-2013BI026229

PATIENT
  Sex: Female

DRUGS (3)
  1. TYSABRI [Suspect]
     Indication: CROHN^S DISEASE
     Route: 042
  2. BENADRYL [Concomitant]
  3. ACETAMINOPHEN [Concomitant]

REACTIONS (1)
  - Pruritus [Recovered/Resolved]
